FAERS Safety Report 14916821 (Version 3)
Quarter: 2018Q2

REPORT INFORMATION
  Report Type: Spontaneous
  Country: US (occurrence: US)
  Receive Date: 20180520
  Receipt Date: 20180624
  Transmission Date: 20180711
  Serious: No
  Sender: FDA-Public Use
  Company Number: US-JNJFOC-20180502806

PATIENT
  Age: 42 Year
  Sex: Male
  Weight: 73.48 kg

DRUGS (5)
  1. ABILIFY [Concomitant]
     Active Substance: ARIPIPRAZOLE
     Route: 065
     Dates: start: 20161206
  2. INVEGA TRINZA [Suspect]
     Active Substance: PALIPERIDONE PALMITATE
     Indication: SCHIZOPHRENIA
     Dosage: NDC / UDI / SERIAL NUMBER / PRESCRIPTION??NUMBER: 104275
     Route: 030
     Dates: start: 20170530
  3. INVEGA [Concomitant]
     Active Substance: PALIPERIDONE
     Route: 065
     Dates: start: 20180501
  4. ATIVAN [Concomitant]
     Active Substance: LORAZEPAM
     Route: 065
     Dates: start: 20180501
  5. COGENTIN [Concomitant]
     Active Substance: BENZTROPINE MESYLATE
     Route: 065
     Dates: start: 20170406

REACTIONS (3)
  - Drug dose omission [Unknown]
  - Device occlusion [Unknown]
  - Syringe issue [Unknown]

NARRATIVE: CASE EVENT DATE: 20180501
